FAERS Safety Report 12587015 (Version 1)
Quarter: 2016Q3

REPORT INFORMATION
  Report Type: Spontaneous
  Country: US (occurrence: US)
  Receive Date: 20160725
  Receipt Date: 20160725
  Transmission Date: 20161109
  Serious: Yes (Hospitalization, Other)
  Sender: FDA-Public Use
  Company Number: US-SCIEGEN PHARMACEUTICALS INC-2016SCILIT00319

PATIENT
  Age: 35 Year
  Sex: Female

DRUGS (1)
  1. BUPROPION HYDROCHLORIDE. [Suspect]
     Active Substance: BUPROPION HYDROCHLORIDE
     Indication: PRODUCT USED FOR UNKNOWN INDICATION
     Dosage: 90-100 TABLETS (13.5 - 15.0G)
     Route: 065

REACTIONS (8)
  - Myocardial stunning [Unknown]
  - Cardiac arrest [Unknown]
  - Hypotension [Unknown]
  - Ventricular tachyarrhythmia [Unknown]
  - Mental status changes [Unknown]
  - Electrocardiogram QT prolonged [None]
  - Intentional overdose [None]
  - Generalised tonic-clonic seizure [Unknown]
